FAERS Safety Report 9526043 (Version 1)
Quarter: 2013Q3

REPORT INFORMATION
  Report Type: Spontaneous
  Country: US (occurrence: None)
  Receive Date: 20130913
  Receipt Date: 20130913
  Transmission Date: 20140515
  Serious: Yes (Hospitalization)
  Sender: FDA-Public Use
  Company Number: None

PATIENT
  Age: 42 Year
  Sex: Male
  Weight: 104.8 kg

DRUGS (4)
  1. BEVACIZUMAB [Suspect]
     Indication: GLIOBLASTOMA
     Dosage: 10MG/KG  DAYS 1 + 15  IV
     Route: 042
     Dates: start: 20130508
  2. BEVACIZUMAB [Suspect]
     Indication: DISEASE RECURRENCE
     Dosage: 10MG/KG  DAYS 1 + 15  IV
     Route: 042
     Dates: start: 20130508
  3. CARBOPLATIN [Suspect]
     Indication: DISEASE RECURRENCE
     Dosage: AUC 6  DAY 1  IV
     Route: 042
     Dates: start: 20130522
  4. CARBOPLATIN [Suspect]
     Indication: GLIOBLASTOMA
     Dosage: AUC 6  DAY 1  IV
     Route: 042
     Dates: start: 20130522

REACTIONS (4)
  - Nausea [None]
  - Vomiting [None]
  - Hypotension [None]
  - Tachycardia [None]
